FAERS Safety Report 5476801-8 (Version None)
Quarter: 2007Q4

REPORT INFORMATION
  Report Type: 
  Country: None (occurrence: None)
  Receive Date: 20071003
  Receipt Date: 20071003
  Transmission Date: 20080405
  Serious: No
  Sender: FDA-Public Use
  Company Number: None

PATIENT
  Sex: Female

DRUGS (1)
  1. PAR-METOPROLOL SR [Suspect]
     Indication: CARDIOMYOPATHY
     Dosage: 1500MG PO QD
     Route: 048
     Dates: start: 20070821

REACTIONS (3)
  - MALAISE [None]
  - PALPITATIONS [None]
  - THERAPEUTIC RESPONSE UNEXPECTED WITH DRUG SUBSTITUTION [None]
